FAERS Safety Report 21947789 (Version 2)
Quarter: 2023Q1

REPORT INFORMATION
  Report Type: Report from Study
  Country: CA (occurrence: CA)
  Receive Date: 20230203
  Receipt Date: 20230206
  Transmission Date: 20230418
  Serious: Yes (Hospitalization)
  Sender: FDA-Public Use
  Company Number: CA-JNJFOC-20230164141

PATIENT
  Age: 32 Year
  Sex: Male

DRUGS (1)
  1. REMICADE [Suspect]
     Active Substance: INFLIXIMAB
     Indication: Crohn^s disease
     Dosage: ON 30-JAN-2023, THE PATIENT RECEIVED 92ND INFUSION OF INFLIXIMAB, RECOMBINANT OF DOSE 500 MG AND COM
     Route: 042
     Dates: start: 20130905

REACTIONS (3)
  - Intestinal resection [Recovering/Resolving]
  - Diarrhoea [Unknown]
  - Frequent bowel movements [Unknown]

NARRATIVE: CASE EVENT DATE: 20230111
